FAERS Safety Report 9275358 (Version 2)
Quarter: 2013Q2

REPORT INFORMATION
  Report Type: Spontaneous
  Country: AU (occurrence: None)
  Receive Date: 20130430
  Receipt Date: 20130524
  Transmission Date: 20140414
  Serious: Yes (Hospitalization)
  Sender: FDA-Public Use
  Company Number: ACO_35085_2013

PATIENT
  Age: 68 Year
  Sex: Male

DRUGS (16)
  1. FAMPRIDINE-SR (FAMPRIDINE) TABLET [Suspect]
     Indication: MULTIPLE SCLEROSIS
     Route: 048
     Dates: start: 20120419
  2. ASPIRIN (ACETYLSALICYLIC ACID) [Concomitant]
  3. LIPITOR (ATORVASTATIN CALCIUM) [Concomitant]
  4. BACLOFEN (BACLOFEN) [Concomitant]
  5. ALLOPURINOL [Concomitant]
  6. METOPROLOL (METOPROLOL TARTRATE) [Concomitant]
  7. SOMAC (PANTOPRAZOLE SODIUM SESQUIHYDRATE) [Concomitant]
  8. VESICARE (SOLIFENACIN SUCCINATE) [Concomitant]
  9. COLOXYL (BISACODYL, DOCUSATE SODIUM) [Concomitant]
  10. BISALAX (BISACODYL) [Concomitant]
  11. COLOFAC (MEBEVERINE HYDROCHLORIDE) [Concomitant]
  12. INNER HEALTH PLUS (BIFIDOBACTERIUM LACTIS, COLOSTRUM, LACTOBACILLUS ACIDOPHILUS) [Concomitant]
  13. MOTILIUM (DOMPERIDONE) [Concomitant]
  14. VITAMIN D (COLECALCIFEROL) [Concomitant]
  15. ACTILAX (LACTULOSE) [Concomitant]
  16. MOVICOL [Concomitant]

REACTIONS (2)
  - Cardiovascular disorder [None]
  - Chest pain [None]
